FAERS Safety Report 5537896-6 (Version None)
Quarter: 2007Q4

REPORT INFORMATION
  Report Type: 
  Country: None (occurrence: None)
  Receive Date: 20071207
  Receipt Date: 20071126
  Transmission Date: 20080405
  Serious: Yes (Other)
  Sender: FDA-Public Use
  Company Number: DE-PFIZER INC-2007099253

PATIENT
  Sex: Female

DRUGS (6)
  1. LYRICA [Suspect]
     Indication: HERPES ZOSTER OPHTHALMIC
     Route: 048
  2. LYRICA [Suspect]
     Indication: HEADACHE
  3. TEMAZEPAM [Concomitant]
  4. TRANYLCYPROMINE SULFATE [Concomitant]
  5. LAMOTRIGINE [Concomitant]
  6. SEROQUEL [Concomitant]

REACTIONS (2)
  - DYSARTHRIA [None]
  - UNEVALUABLE EVENT [None]
